FAERS Safety Report 24199417 (Version 1)
Quarter: 2024Q3

REPORT INFORMATION
  Report Type: Spontaneous
  Country: IT (occurrence: IT)
  Receive Date: 20240812
  Receipt Date: 20240812
  Transmission Date: 20241016
  Serious: Yes (Hospitalization)
  Sender: MYLAN
  Company Number: IT-MYLANLABS-2024M1072775

PATIENT
  Age: 39 Year
  Sex: Male

DRUGS (7)
  1. URSODIOL [Suspect]
     Active Substance: URSODIOL
     Indication: Immune-mediated hepatitis
     Dosage: 300 MILLIGRAM, TID (THRICE A DAY)
     Route: 065
  2. METHYLPREDNISOLONE [Suspect]
     Active Substance: METHYLPREDNISOLONE
     Indication: Immune-mediated hepatitis
     Dosage: 1 MILLIGRAM/KILOGRAM
     Route: 065
  3. MYCOPHENOLATE MOFETIL [Suspect]
     Active Substance: MYCOPHENOLATE MOFETIL
     Indication: Immune-mediated hepatitis
     Dosage: 500 MILLIGRAM, BID
     Route: 065
  4. CANRENONE [Suspect]
     Active Substance: CANRENONE
     Indication: Polyserositis
     Dosage: 100 MILLIGRAM, BID
     Route: 065
  5. SULFAMETHOXAZOLE\TRIMETHOPRIM [Concomitant]
     Active Substance: SULFAMETHOXAZOLE\TRIMETHOPRIM
     Indication: Antibiotic prophylaxis
     Dosage: UNK
     Route: 065
  6. LEVOTHYROXINE [Concomitant]
     Active Substance: LEVOTHYROXINE\LEVOTHYROXINE SODIUM
     Indication: Hypothyroidism
     Dosage: UNK
     Route: 065
  7. EDOXABAN [Concomitant]
     Active Substance: EDOXABAN
     Indication: Superficial vein thrombosis
     Dosage: UNK
     Route: 065

REACTIONS (2)
  - Treatment failure [Unknown]
  - Off label use [Unknown]
